FAERS Safety Report 20980831 (Version 2)
Quarter: 2022Q3

REPORT INFORMATION
  Report Type: Other
  Country: TR (occurrence: TR)
  Receive Date: 20220620
  Receipt Date: 20220907
  Transmission Date: 20221026
  Serious: Yes (Other)
  Sender: FDA-Public Use
  Company Number: TR-MLMSERVICE-20220602-3592877-1

PATIENT
  Age: 66 Year
  Sex: Female

DRUGS (3)
  1. IBANDRONIC ACID [Suspect]
     Active Substance: IBANDRONIC ACID
     Indication: Osteoporosis
     Route: 065
  2. CALCIUM CARBONATE [Concomitant]
     Active Substance: CALCIUM CARBONATE
     Indication: Osteoporosis
  3. COLCHICINE [Concomitant]
     Active Substance: COLCHICINE
     Indication: Familial mediterranean fever

REACTIONS (2)
  - Femoral neck fracture [Recovered/Resolved]
  - Atypical femur fracture [Recovered/Resolved]
